FAERS Safety Report 14760804 (Version 1)
Quarter: 2018Q2

REPORT INFORMATION
  Report Type: Report from Study
  Country: US (occurrence: US)
  Receive Date: 20180414
  Receipt Date: 20180414
  Transmission Date: 20180711
  Serious: Yes (Death, Hospitalization)
  Sender: FDA-Public Use
  Company Number: US-JNJFOC-20180407416

PATIENT
  Age: 49 Year
  Sex: Male

DRUGS (3)
  1. TYLENOL ARTHRITIS PAIN [Suspect]
     Active Substance: ACETAMINOPHEN
     Route: 065
  2. ALCOHOL. [Suspect]
     Active Substance: ALCOHOL
     Indication: PRODUCT USED FOR UNKNOWN INDICATION
     Route: 065
  3. TYLENOL ARTHRITIS PAIN [Suspect]
     Active Substance: ACETAMINOPHEN
     Indication: PRODUCT USED FOR UNKNOWN INDICATION
     Route: 065

REACTIONS (13)
  - Coma [Fatal]
  - Toxicity to various agents [Fatal]
  - Fall [Fatal]
  - Hyperhidrosis [Fatal]
  - Haematoma [Fatal]
  - Intervertebral disc protrusion [Fatal]
  - Head injury [Fatal]
  - Cerebral haemorrhage [Fatal]
  - Ecchymosis [Fatal]
  - Ankle fracture [Fatal]
  - Brain oedema [Fatal]
  - Oedema [Fatal]
  - Drug administration error [Fatal]
